FAERS Safety Report 10260885 (Version 1)
Quarter: 2014Q2

REPORT INFORMATION
  Report Type: Report from Study
  Country: US (occurrence: US)
  Receive Date: 20140626
  Receipt Date: 20140626
  Transmission Date: 20141212
  Serious: Yes (Hospitalization)
  Sender: FDA-Public Use
  Company Number: PHEH2014US012693

PATIENT
  Age: 51 Year
  Sex: Female

DRUGS (1)
  1. NEORAL [Suspect]
     Indication: RENAL TRANSPLANT
     Dosage: 100 MG, BID
     Route: 048

REACTIONS (6)
  - Renal cyst ruptured [Unknown]
  - Dehydration [Unknown]
  - Sinusitis [Recovering/Resolving]
  - Kidney infection [Unknown]
  - Pyrexia [Unknown]
  - Blood creatine increased [Unknown]
